FAERS Safety Report 9624440 (Version 2)
Quarter: 2013Q4

REPORT INFORMATION
  Report Type: Spontaneous
  Country: IT (occurrence: IT)
  Receive Date: 20131015
  Receipt Date: 20131212
  Transmission Date: 20140711
  Serious: Yes (Other)
  Sender: FDA-Public Use
  Company Number: IT-TEVA-436673ISR

PATIENT
  Age: 72 Year
  Sex: 0

DRUGS (3)
  1. OLANZAPINA TEVA 10MG [Suspect]
     Indication: SCHIZOPHRENIA
     Dosage: 10 MILLIGRAM DAILY;
     Route: 048
     Dates: start: 20130501, end: 20130910
  2. TANQUIRIT 0.5% [Concomitant]
     Dosage: 60 GTT DAILY;
  3. HALDOL 2MG/ML [Concomitant]
     Dosage: 90 GTT DAILY;

REACTIONS (5)
  - Insomnia [Recovered/Resolved]
  - Irritability [Recovered/Resolved]
  - Abnormal behaviour [Recovered/Resolved]
  - Delirium [Recovered/Resolved]
  - Drug ineffective [Recovered/Resolved]
